FAERS Safety Report 6310339-0 (Version None)
Quarter: 2009Q3

REPORT INFORMATION
  Report Type: 
  Country: None (occurrence: None)
  Receive Date: 20090811
  Receipt Date: 20090803
  Transmission Date: 20100115
  Serious: Yes (Death, Hospitalization)
  Sender: FDA-Public Use
  Company Number: 2008-183409-NL

PATIENT
  Age: 25 Year
  Sex: Female
  Weight: 133.8111 kg

DRUGS (1)
  1. NUVARING [Suspect]
     Indication: CONTRACEPTION
     Dosage: 1 DF; QM;
     Dates: start: 20060809, end: 20060907

REACTIONS (17)
  - ANOXIC ENCEPHALOPATHY [None]
  - APNOEA [None]
  - ARRHYTHMIA [None]
  - BACK PAIN [None]
  - BRAIN DEATH [None]
  - CARDIAC ARREST [None]
  - CYANOSIS [None]
  - DISSEMINATED INTRAVASCULAR COAGULATION [None]
  - HAEMORRHAGE [None]
  - MUSCLE SPASMS [None]
  - NAUSEA [None]
  - ORGAN FAILURE [None]
  - PAIN IN EXTREMITY [None]
  - PULMONARY INFARCTION [None]
  - PULMONARY SEPSIS [None]
  - PULSE ABSENT [None]
  - VOMITING [None]
